FAERS Safety Report 17875646 (Version 2)
Quarter: 2020Q2

REPORT INFORMATION
  Report Type: Spontaneous
  Country: FR (occurrence: FR)
  Receive Date: 20200609
  Receipt Date: 20200616
  Transmission Date: 20200714
  Serious: Yes (Hospitalization, Disabling, Congenital Anomaly, Other)
  Sender: FDA-Public Use
  Company Number: FR-MYLANLABS-2020M1054555

PATIENT
  Sex: Male

DRUGS (5)
  1. URBANYL [Suspect]
     Active Substance: CLOBAZAM
     Indication: PRODUCT USED FOR UNKNOWN INDICATION
     Dosage: 20 MG, QD
     Route: 064
     Dates: start: 20070803, end: 20080412
  2. LAMOTRIGINE. [Suspect]
     Active Substance: LAMOTRIGINE
     Indication: PRODUCT USED FOR UNKNOWN INDICATION
     Dosage: 200 MG, QD
     Route: 064
     Dates: start: 20070803, end: 20080412
  3. DEPAKINE CHRONO [Suspect]
     Active Substance: VALPROATE SODIUM
     Indication: PRODUCT USED FOR UNKNOWN INDICATION
     Dosage: 1500 MG, QD
     Route: 064
     Dates: start: 20070803, end: 20080412
  4. SPECIAFOLDINE [Concomitant]
     Active Substance: FOLIC ACID
     Dosage: 10 MG, QD
     Route: 064
  5. OXCARBAZEPINE. [Suspect]
     Active Substance: OXCARBAZEPINE
     Indication: PRODUCT USED FOR UNKNOWN INDICATION
     Dosage: 600 MG, QD
     Route: 064
     Dates: start: 20070803, end: 20080412

REACTIONS (54)
  - Strabismus congenital [Unknown]
  - Psychomotor retardation [Unknown]
  - Congenital myopia [Unknown]
  - Psychomotor hyperactivity [Unknown]
  - Otitis media [Recovered/Resolved]
  - Educational problem [Unknown]
  - Foetal exposure during pregnancy [Recovered/Resolved]
  - Hypotonia neonatal [Recovered/Resolved]
  - Erythrosis [Unknown]
  - Right ventricular failure [Not Recovered/Not Resolved]
  - Enuresis [Recovering/Resolving]
  - Foetal anticonvulsant syndrome [Unknown]
  - Anxiety disorder [Unknown]
  - Disturbance in attention [Unknown]
  - Dysuria [Unknown]
  - Ecchymosis [Unknown]
  - Dehydration [Unknown]
  - Urinary tract infection neonatal [Unknown]
  - Abnormal behaviour [Unknown]
  - Hallucination [Unknown]
  - Speech disorder developmental [Unknown]
  - Vomiting [Unknown]
  - Intellectual disability [Unknown]
  - Viral infection [Unknown]
  - Seizure [Unknown]
  - Kyphosis congenital [Unknown]
  - Congenital astigmatism [Unknown]
  - Atrial septal defect [Not Recovered/Not Resolved]
  - Balanoposthitis [Unknown]
  - Fontanelle bulging [Unknown]
  - Coordination abnormal [Unknown]
  - Sluggishness [Unknown]
  - Dysmorphism [Not Recovered/Not Resolved]
  - Cyanosis neonatal [Unknown]
  - Autism spectrum disorder [Unknown]
  - Cognitive disorder [Unknown]
  - Gastroenteritis [Unknown]
  - Motor developmental delay [Unknown]
  - Pulmonary artery dilatation [Not Recovered/Not Resolved]
  - Otitis media acute [Recovered/Resolved]
  - Cryptorchism [Unknown]
  - Developmental coordination disorder [Unknown]
  - Fine motor delay [Unknown]
  - Conjunctivitis [Unknown]
  - Muscle tone disorder [Unknown]
  - Food intolerance [Unknown]
  - Diarrhoea [Unknown]
  - Balance disorder [Unknown]
  - Cardiac murmur [Unknown]
  - Rhinitis [Unknown]
  - Psychomotor skills impaired [Unknown]
  - Epilepsy [Recovering/Resolving]
  - Autism spectrum disorder [Unknown]
  - Sleep disorder [Unknown]

NARRATIVE: CASE EVENT DATE: 20080412
